FAERS Safety Report 4532624-5 (Version None)
Quarter: 2004Q4

REPORT INFORMATION
  Report Type: 
  Country: None (occurrence: None)
  Receive Date: 20041220
  Receipt Date: 20041220
  Transmission Date: 20050328
  Serious: No
  Sender: FDA-Public Use
  Company Number: None

PATIENT
  Age: 40 Year
  Sex: Male
  Weight: 65.9 kg

DRUGS (1)
  1. PEG INTERFERON ALFA 2A [Suspect]
     Indication: HEPATITIS C
     Dosage: 180 MCG SC WEEKLY
     Route: 058

REACTIONS (1)
  - RETINAL EXUDATES [None]
